FAERS Safety Report 18052157 (Version 1)
Quarter: 2020Q3

REPORT INFORMATION
  Report Type: Spontaneous
  Country: SA (occurrence: SA)
  Receive Date: 20200722
  Receipt Date: 20200722
  Transmission Date: 20201103
  Serious: Yes (Death, Hospitalization)
  Sender: FDA-Public Use
  Company Number: SA-ALKEM LABORATORIES LIMITED-SA-ALKEM-2020-02260

PATIENT
  Age: 44 Year
  Sex: Male

DRUGS (3)
  1. PREDNISONE. [Suspect]
     Active Substance: PREDNISONE
     Indication: PROPHYLAXIS AGAINST TRANSPLANT REJECTION
     Dosage: 5 MILLIGRAM, QD
     Route: 065
  2. CYCLOSPORINE. [Suspect]
     Active Substance: CYCLOSPORINE
     Indication: PROPHYLAXIS AGAINST TRANSPLANT REJECTION
     Dosage: UNK
     Route: 065
  3. AZATHIOPRINE. [Suspect]
     Active Substance: AZATHIOPRINE
     Indication: PROPHYLAXIS AGAINST TRANSPLANT REJECTION
     Dosage: 50 MILLIGRAM, QD
     Route: 065

REACTIONS (2)
  - Middle East respiratory syndrome [Fatal]
  - Pneumonia viral [Fatal]
